FAERS Safety Report 8811915 (Version 4)
Quarter: 2013Q2

REPORT INFORMATION
  Report Type: Report from Study
  Country: JP (occurrence: JP)
  Receive Date: 20120927
  Receipt Date: 20130415
  Transmission Date: 20140414
  Serious: Yes (Death, Hospitalization)
  Sender: FDA-Public Use
  Company Number: JP-AMGEN-JPNCT2012060923

PATIENT
  Age: 86 Year
  Sex: Male
  Weight: 50 kg

DRUGS (22)
  1. DARBEPOETIN ALFA [Suspect]
     Indication: NEPHROGENIC ANAEMIA
     Dosage: 180 MUG, QD
     Route: 040
     Dates: start: 20101102
  2. DARBEPOETIN ALFA [Suspect]
     Dosage: 120 MUG, Q2WK
     Route: 040
     Dates: start: 20120207
  3. DARBEPOETIN ALFA [Suspect]
     Dosage: 180 MUG, QD
     Route: 040
     Dates: start: 20120319, end: 20120319
  4. LASIX [Concomitant]
     Dosage: UNK
     Route: 048
  5. PERSANTIN [Concomitant]
     Dosage: UNK
     Route: 048
  6. FERROMIA [Concomitant]
     Dosage: UNK
     Route: 048
  7. ZYLORIC [Concomitant]
     Dosage: UNK
     Route: 048
  8. SODIUM BICARBONATE [Concomitant]
     Dosage: UNK
     Route: 048
  9. ARGAMATE [Concomitant]
     Dosage: UNK
     Route: 048
  10. CLARITIN [Concomitant]
     Dosage: UNK
     Route: 048
  11. SENNARIDE [Concomitant]
     Dosage: UNK
     Route: 048
  12. LENDORMIN [Concomitant]
     Dosage: UNK
     Route: 048
  13. MAGMITT [Concomitant]
     Dosage: UNK
     Route: 048
  14. KREMEZIN [Concomitant]
     Indication: GLOMERULONEPHRITIS CHRONIC
     Dosage: UNK
     Route: 048
  15. TAKEPRON [Concomitant]
     Dosage: UNK
     Route: 048
  16. WARFARIN [Concomitant]
     Dosage: UNK
     Route: 048
  17. LACTEC [Concomitant]
     Dosage: UNK
     Route: 065
  18. HANP [Concomitant]
     Dosage: UNK
     Route: 065
  19. MEROPENEM [Concomitant]
     Dosage: UNK
     Route: 065
  20. CRAVIT [Concomitant]
     Dosage: UNK
     Route: 065
  21. SOLACET D [Concomitant]
     Dosage: UNK
     Route: 065
  22. OTHER ANTIANEMIC PREPARATIONS [Concomitant]
     Indication: NEPHROGENIC ANAEMIA
     Dosage: UNK

REACTIONS (1)
  - Cardiac failure acute [Fatal]
